FAERS Safety Report 6402175-1 (Version None)
Quarter: 2009Q4

REPORT INFORMATION
  Report Type: 
  Country: None (occurrence: None)
  Receive Date: 20091015
  Receipt Date: 20091008
  Transmission Date: 20100525
  Serious: Yes (Death)
  Sender: FDA-Public Use
  Company Number: GR-ASTRAZENECA-2009SE19523

PATIENT
  Age: 24 Year
  Sex: Male

DRUGS (4)
  1. SEROQUEL [Suspect]
     Indication: BIPOLAR DISORDER
     Route: 048
     Dates: start: 20070101, end: 20090401
  2. SEROQUEL [Suspect]
     Route: 048
     Dates: start: 20090401
  3. SEROQUEL [Suspect]
     Route: 048
  4. DEPAKENE [Concomitant]
     Indication: BIPOLAR DISORDER

REACTIONS (1)
  - COMPLETED SUICIDE [None]
